FAERS Safety Report 24390069 (Version 1)
Quarter: 2024Q4

REPORT INFORMATION
  Report Type: Report from Study
  Country: US (occurrence: US)
  Receive Date: 20241003
  Receipt Date: 20241003
  Transmission Date: 20250114
  Serious: Yes (Hospitalization)
  Sender: JOHNSON AND JOHNSON
  Company Number: US-JNJFOC-20241000910

PATIENT
  Age: 4 Decade
  Sex: Female

DRUGS (1)
  1. SPRAVATO [Suspect]
     Active Substance: ESKETAMINE
     Indication: Depression
     Dosage: ^^84 MG, 87 TOTAL DOSES^^
     Dates: start: 20230131, end: 20240926

REACTIONS (1)
  - Hospitalisation [Recovering/Resolving]
